FAERS Safety Report 14559354 (Version 1)
Quarter: 2018Q1

REPORT INFORMATION
  Report Type: Spontaneous
  Country: US (occurrence: US)
  Receive Date: 20180221
  Receipt Date: 20180221
  Transmission Date: 20180509
  Serious: Yes (Hospitalization, Disabling)
  Sender: FDA-Public Use
  Company Number: None

PATIENT
  Age: 64 Year
  Sex: Male
  Weight: 75.3 kg

DRUGS (12)
  1. AMLODIPINE [Concomitant]
     Active Substance: AMLODIPINE BESYLATE
  2. PRAVASTATIN. [Concomitant]
     Active Substance: PRAVASTATIN
  3. BIOTIN [Concomitant]
     Active Substance: BIOTIN
  4. METOPROLOL. [Concomitant]
     Active Substance: METOPROLOL
  5. FOSINOPRIL [Concomitant]
     Active Substance: FOSINOPRIL
  6. VITAMIN B12 [Concomitant]
     Active Substance: CYANOCOBALAMIN
  7. ZOLOFT [Suspect]
     Active Substance: SERTRALINE HYDROCHLORIDE
     Indication: ANXIETY
     Dosage: 1/2 PILL BEDTIME
     Route: 048
     Dates: start: 20170626, end: 20170629
  8. MULTI-BETIC VITAMIN [Concomitant]
  9. METFORMIN [Concomitant]
     Active Substance: METFORMIN HYDROCHLORIDE
  10. ESCITALOPRAM [Concomitant]
     Active Substance: ESCITALOPRAM OXALATE
  11. OMEGA 3 [Concomitant]
     Active Substance: OMEGA-3 FATTY ACIDS
  12. VITAMIN D3 [Concomitant]
     Active Substance: CHOLECALCIFEROL

REACTIONS (10)
  - Urticaria [None]
  - Middle insomnia [None]
  - Cognitive disorder [None]
  - Abnormal behaviour [None]
  - Insomnia [None]
  - Panic attack [None]
  - Confusional state [None]
  - Amnesia [None]
  - Restlessness [None]
  - Pruritus [None]

NARRATIVE: CASE EVENT DATE: 20170629
